FAERS Safety Report 4350825-6 (Version None)
Quarter: 2004Q2

REPORT INFORMATION
  Report Type: 
  Country: None (occurrence: None)
  Receive Date: 20040428
  Receipt Date: 20040415
  Transmission Date: 20050107
  Serious: Yes (Hospitalization, Other)
  Sender: FDA-Public Use
  Company Number: 2004026100

PATIENT
  Age: 35 Year
  Sex: Female

DRUGS (3)
  1. GEODON [Suspect]
     Indication: ILL-DEFINED DISORDER
     Dosage: 120 MG (BID), ORAL
     Route: 048
     Dates: start: 20030313, end: 20040201
  2. PAROXETINE HCL [Concomitant]
  3. MEDROXYPROGESTERONE ACETATE [Concomitant]

REACTIONS (3)
  - LOW DENSITY LIPOPROTEIN INCREASED [None]
  - SYNCOPE [None]
  - VENTRICULAR TACHYCARDIA [None]
